FAERS Safety Report 8577657-7 (Version None)
Quarter: 2012Q3

REPORT INFORMATION
  Report Type: 
  Country: None (occurrence: None)
  Receive Date: 20120807
  Receipt Date: 20120726
  Transmission Date: 20120928
  Serious: Yes (Hospitalization)
  Sender: FDA-Public Use
  Company Number: SE-ELI_LILLY_AND_COMPANY-SE201204004353

PATIENT
  Sex: Female

DRUGS (7)
  1. BYETTA [Suspect]
     Indication: DIABETES MELLITUS
     Dosage: 10 UG, BID
     Dates: start: 20110401
  2. SALURES [Concomitant]
     Dosage: 2.5 MG, UNKNOWN
  3. LIPITOR [Concomitant]
     Dosage: 40 MG, UNKNOWN
  4. FELODIPINE [Concomitant]
  5. METFORMIN HYDROCHLORIDE [Concomitant]
  6. ATACAND [Concomitant]
     Dosage: 32 MG, UNKNOWN
  7. BEVIPLEX [Concomitant]

REACTIONS (1)
  - CEREBRAL HAEMORRHAGE [None]
